FAERS Safety Report 12437835 (Version 2)
Quarter: 2017Q1

REPORT INFORMATION
  Report Type: Spontaneous
  Country: GB (occurrence: GB)
  Receive Date: 20160606
  Receipt Date: 20170203
  Transmission Date: 20170428
  Serious: No
  Sender: FDA-Public Use
  Company Number: GB-ROSEMONT-16GB016538

PATIENT
  Sex: Female

DRUGS (5)
  1. BETA BLOCKING AGENTS [Concomitant]
     Active Substance: UNSPECIFIED INGREDIENT
     Indication: HEART RATE
     Dosage: UNK
     Route: 065
  2. SERTRALINE [Concomitant]
     Active Substance: SERTRALINE HYDROCHLORIDE
     Indication: ANXIETY
     Dosage: UNK
     Route: 065
  3. CODEINE [Concomitant]
     Active Substance: CODEINE
     Indication: PRODUCT USED FOR UNKNOWN INDICATION
     Dosage: UNK
     Route: 065
  4. DIAZEPAM. [Concomitant]
     Active Substance: DIAZEPAM
     Indication: PRODUCT USED FOR UNKNOWN INDICATION
     Dosage: UNK
     Route: 065
  5. PARACETAMOL PLUS TABLETS 12063/0007 [Suspect]
     Active Substance: ACETAMINOPHEN
     Indication: PRODUCT USED FOR UNKNOWN INDICATION
     Dosage: 4 DF, UNK
     Route: 048
     Dates: start: 20160524, end: 20160524

REACTIONS (20)
  - Hyperhidrosis [Unknown]
  - Irritability [Unknown]
  - Condition aggravated [Recovered/Resolved]
  - Panic attack [Recovered/Resolved]
  - Restlessness [Recovered/Resolved]
  - Insomnia [Recovered/Resolved]
  - Abdominal discomfort [Recovered/Resolved]
  - Anxiety [Unknown]
  - Hypertension [Unknown]
  - Tachyphrenia [Recovered/Resolved]
  - Speech disorder [Unknown]
  - Nervousness [Unknown]
  - Feeding disorder [Unknown]
  - Malaise [Unknown]
  - Heart rate increased [Unknown]
  - Soliloquy [Recovered/Resolved]
  - Dizziness [Unknown]
  - Headache [Recovered/Resolved]
  - Drug dispensing error [Recovered/Resolved]
  - Chills [Recovered/Resolved]
